FAERS Safety Report 8192036-2 (Version None)
Quarter: 2012Q1

REPORT INFORMATION
  Report Type: 
  Country: None (occurrence: None)
  Receive Date: 20120307
  Receipt Date: 20120305
  Transmission Date: 20120608
  Serious: Yes (Other)
  Sender: FDA-Public Use
  Company Number: PHEH2012US005090

PATIENT
  Sex: Female

DRUGS (9)
  1. CRESTOR [Concomitant]
     Dosage: UNK
  2. LANTUS [Concomitant]
     Dosage: UNK
  3. GLUCOTROL [Concomitant]
     Dosage: UNK
  4. INSULIN [Concomitant]
     Dosage: UNK
  5. MULTI-VITAMINS [Concomitant]
     Dosage: UNK
  6. DIOVAN [Suspect]
     Dosage: UNK
  7. METFORMIN [Concomitant]
     Dosage: UNK
  8. JANUVIA [Concomitant]
     Dosage: UNK
  9. FLAXSEED OIL [Concomitant]
     Dosage: UNK

REACTIONS (3)
  - CONTUSION [None]
  - BONE PAIN [None]
  - FALL [None]
